FAERS Safety Report 25183035 (Version 3)
Quarter: 2025Q2

REPORT INFORMATION
  Report Type: Spontaneous
  Country: JP (occurrence: JP)
  Receive Date: 20250410
  Receipt Date: 20250421
  Transmission Date: 20250717
  Serious: Yes (Other)
  Sender: MERCK SHARP & DOHME LLC
  Company Number: JP-MSD-2409JPN003387J

PATIENT
  Age: 30 Year
  Sex: Female
  Weight: 38 kg

DRUGS (15)
  1. BELSOMRA [Suspect]
     Active Substance: SUVOREXANT
     Indication: Insomnia
     Dosage: DOSE DESCRIPTION : 20 MILLIGRAM, QD?DAILY DOSE : 20 MILLIGRAM?CONCENTRATION: 20 MILLIGRAM?REGIMEN...
     Route: 048
     Dates: start: 20231018, end: 20231024
  2. BELSOMRA [Suspect]
     Active Substance: SUVOREXANT
     Indication: Insomnia
     Dosage: DOSE DESCRIPTION : 20 MILLIGRAM, QD?DAILY DOSE : 20 MILLIGRAM?CONCENTRATION: 20 MILLIGRAM
     Route: 048
     Dates: start: 20250215
  3. BELSOMRA [Suspect]
     Active Substance: SUVOREXANT
     Indication: Insomnia
     Dosage: DOSE DESCRIPTION : 15 MILLIGRAM?CONCENTRATION: 15 MILLIGRAM
     Route: 048
     Dates: start: 20230829, end: 20231002
  4. BELSOMRA [Suspect]
     Active Substance: SUVOREXANT
     Indication: Insomnia
     Dosage: DOSE DESCRIPTION : 15 MILLIGRAM?CONCENTRATION: 15 MILLIGRAM
     Route: 048
  5. BELSOMRA [Suspect]
     Active Substance: SUVOREXANT
     Indication: Insomnia
     Dosage: 10 MG, ONCE DAILY
     Route: 048
     Dates: start: 20231020, end: 20231024
  6. OLANZAPINE [Interacting]
     Active Substance: OLANZAPINE
     Dosage: INCREASED TO 20 MG
     Route: 048
     Dates: start: 20231003, end: 20231010
  7. OLANZAPINE [Interacting]
     Active Substance: OLANZAPINE
     Route: 048
     Dates: start: 20230904
  8. OLANZAPINE [Interacting]
     Active Substance: OLANZAPINE
     Route: 048
     Dates: start: 20231010, end: 20231018
  9. ZYPREXA [Suspect]
     Active Substance: OLANZAPINE
     Indication: Schizophrenia
     Route: 048
     Dates: start: 20221019, end: 20231022
  10. JUMIHAIDOKUTO [ARALIA CORDATA RHIZOME;BUPLEURUM FALCATUM ROOT;GLYCY... [Concomitant]
     Indication: Dermatitis atopic
     Route: 048
     Dates: start: 20231012
  11. HERBALS [Concomitant]
     Active Substance: HERBALS
     Indication: Constipation
     Route: 048
     Dates: start: 20230911
  12. MAGNESIUM OXIDE [Concomitant]
     Active Substance: MAGNESIUM OXIDE
     Indication: Constipation
     Route: 048
     Dates: start: 20230904
  13. REXULTI [Suspect]
     Active Substance: BREXPIPRAZOLE
     Indication: Schizophrenia
     Route: 048
     Dates: end: 20230904
  14. REXULTI [Suspect]
     Active Substance: BREXPIPRAZOLE
     Indication: Schizophrenia
     Dosage: STRENGTH: 2 MG. DOSE FORM: OD TABLET. DOSAGE(DAILY) (DOSE/NUMBER OF DOSES): 2 MG/ONCE.
     Route: 048
     Dates: start: 20231018, end: 20231024
  15. REXULTI [Suspect]
     Active Substance: BREXPIPRAZOLE
     Indication: Schizophrenia
     Dosage: 1 MG, ONCE A DAY
     Route: 048
     Dates: start: 20231010

REACTIONS (4)
  - Urinary retention [Recovering/Resolving]
  - Drug interaction [Unknown]
  - Vomiting [Unknown]
  - Underdose [Unknown]

NARRATIVE: CASE EVENT DATE: 20231020
